FAERS Safety Report 5106108-X (Version None)
Quarter: 2006Q3

REPORT INFORMATION
  Report Type: 
  Country: None (occurrence: None)
  Receive Date: 20060911
  Receipt Date: 20060830
  Transmission Date: 20061208
  Serious: Yes (Other)
  Sender: FDA-Public Use
  Company Number: HQWYE300705SEP06

PATIENT
  Age: 55 Year
  Sex: Male

DRUGS (4)
  1. EFFEXOR XR [Suspect]
     Dosage: SEE IMAGE
     Route: 048
     Dates: start: 20060806, end: 20060801
  2. EFFEXOR XR [Suspect]
     Dosage: SEE IMAGE
     Route: 048
     Dates: start: 20060801
  3. RISPERDAL [Concomitant]
  4. VIAGRA [Concomitant]

REACTIONS (2)
  - DRUG INEFFECTIVE [None]
  - SELF-INJURIOUS IDEATION [None]
